FAERS Safety Report 8540728-5 (Version None)
Quarter: 2012Q3

REPORT INFORMATION
  Report Type: 
  Country: None (occurrence: None)
  Receive Date: 20120726
  Receipt Date: 20120719
  Transmission Date: 20120928
  Serious: Yes (Hospitalization)
  Sender: FDA-Public Use
  Company Number: AU-JNJFOC-20120705043

PATIENT
  Sex: Female

DRUGS (3)
  1. STELARA [Suspect]
     Route: 058
     Dates: start: 20120331
  2. STELARA [Suspect]
     Indication: PRODUCT USED FOR UNKNOWN INDICATION
     Route: 058
     Dates: start: 20120428
  3. MIXTARD HUMAN 70/30 [Concomitant]

REACTIONS (5)
  - PERITONITIS [None]
  - LIVER DISORDER [None]
  - FATIGUE [None]
  - VITAMIN D DEFICIENCY [None]
  - OEDEMA PERIPHERAL [None]
